FAERS Safety Report 6706252-7 (Version None)
Quarter: 2010Q2

REPORT INFORMATION
  Report Type: 
  Country: None (occurrence: None)
  Receive Date: 20100503
  Receipt Date: 20100421
  Transmission Date: 20101027
  Serious: Yes (Hospitalization)
  Sender: FDA-Public Use
  Company Number: GB-PFIZER INC-2010040079

PATIENT
  Age: 41 Year
  Sex: Female

DRUGS (6)
  1. CYTARABINE [Suspect]
  2. IDARUBICIN HCL [Suspect]
  3. DASATINIB [Suspect]
     Dosage: 140 MG, 1X/DAY
     Dates: start: 20100111, end: 20100129
  4. FLUDARABINE [Suspect]
  5. FILGRASTIM [Suspect]
  6. IMATINIB MESILATE [Concomitant]

REACTIONS (3)
  - FEBRILE NEUTROPENIA [None]
  - PULMONARY MASS [None]
  - RASH [None]
